FAERS Safety Report 9999141 (Version 2)
Quarter: 2014Q1

REPORT INFORMATION
  Report Type: Spontaneous
  Country: US (occurrence: US)
  Receive Date: 20140312
  Receipt Date: 20140312
  Transmission Date: 20141002
  Serious: Yes (Other)
  Sender: FDA-Public Use
  Company Number: US-JNJFOC-20140111979

PATIENT
  Sex: Male

DRUGS (5)
  1. RISPERDAL [Suspect]
     Indication: EMOTIONAL DISORDER
     Route: 048
  2. RISPERDAL [Suspect]
     Indication: EMOTIONAL DISORDER
     Route: 048
     Dates: start: 2006, end: 2010
  3. SEROQUEL [Suspect]
     Indication: EMOTIONAL DISORDER
     Route: 048
  4. ABILIFY [Suspect]
     Indication: PRODUCT USED FOR UNKNOWN INDICATION
     Route: 048
  5. ZOLOFT [Concomitant]
     Indication: PRODUCT USED FOR UNKNOWN INDICATION
     Route: 065

REACTIONS (5)
  - Gynaecomastia [Unknown]
  - Breast pain [Unknown]
  - Weight increased [Unknown]
  - Emotional disorder [Unknown]
  - Off label use [Unknown]
